FAERS Safety Report 17193031 (Version 1)
Quarter: 2019Q4

REPORT INFORMATION
  Report Type: Spontaneous
  Country: US (occurrence: US)
  Receive Date: 20191223
  Receipt Date: 20191223
  Transmission Date: 20200122
  Serious: Yes (Other)
  Sender: FDA-Public Use
  Company Number: US-SA-2018SA003320

PATIENT
  Sex: Female

DRUGS (2)
  1. TAXOTERE [Suspect]
     Active Substance: DOCETAXEL
     Dosage: UNK, UNK
     Route: 051
     Dates: start: 200112, end: 200112
  2. TAXOTERE [Suspect]
     Active Substance: DOCETAXEL
     Dosage: UNK, UNK
     Route: 042
     Dates: start: 200108, end: 200108

REACTIONS (1)
  - Alopecia [Not Recovered/Not Resolved]
